FAERS Safety Report 10457261 (Version 3)
Quarter: 2014Q4

REPORT INFORMATION
  Report Type: Spontaneous
  Country: BR (occurrence: BR)
  Receive Date: 20140916
  Receipt Date: 20141031
  Transmission Date: 20150528
  Serious: Yes (Hospitalization)
  Sender: FDA-Public Use
  Company Number: BR-BRISTOL-MYERS SQUIBB COMPANY-21373519

PATIENT
  Age: 65 Year
  Sex: Male
  Weight: 89 kg

DRUGS (4)
  1. SIMVASTATIN. [Concomitant]
     Active Substance: SIMVASTATIN
  2. TICAGRELOR [Suspect]
     Active Substance: TICAGRELOR
     Indication: VENOUS OCCLUSION
     Dosage: 1 DF: UNITS NOS.
     Dates: start: 2014
  3. HIDANTAL [Concomitant]
     Active Substance: PHENYTOIN SODIUM
  4. METFORMIN HCL [Suspect]
     Active Substance: METFORMIN HYDROCHLORIDE
     Route: 048
     Dates: start: 2004

REACTIONS (2)
  - Carotid artery stenosis [Recovering/Resolving]
  - Peripheral arterial occlusive disease [Recovered/Resolved]

NARRATIVE: CASE EVENT DATE: 2014
